FAERS Safety Report 20482493 (Version 3)
Quarter: 2022Q1

REPORT INFORMATION
  Report Type: Spontaneous
  Country: US (occurrence: US)
  Receive Date: 20220217
  Receipt Date: 20220314
  Transmission Date: 20220424
  Serious: Yes (Other)
  Sender: FDA-Public Use
  Company Number: US-CELLTRION INC.-2022US001602

PATIENT

DRUGS (2)
  1. TRUXIMA [Suspect]
     Active Substance: RITUXIMAB-ABBS
     Indication: Thrombotic thrombocytopenic purpura
     Dosage: 739 MG, NO FREQUENCY LISTED
     Route: 042
     Dates: start: 20220202
  2. TRUXIMA [Suspect]
     Active Substance: RITUXIMAB-ABBS
     Dosage: 739 MG, NO FREQUENCY LISTED
     Route: 042
     Dates: start: 20220209

REACTIONS (2)
  - Thrombotic thrombocytopenic purpura [Unknown]
  - Off label use [Unknown]
